FAERS Safety Report 4598131-9 (Version None)
Quarter: 2005Q1

REPORT INFORMATION
  Report Type: 
  Country: None (occurrence: None)
  Receive Date: 20050302
  Receipt Date: 20050218
  Transmission Date: 20050727
  Serious: Yes (Other)
  Sender: FDA-Public Use
  Company Number: DE-2005-002413

PATIENT
  Age: 59 Year
  Sex: Male
  Weight: 91 kg

DRUGS (1)
  1. ULTRAVIST 150 [Suspect]
     Indication: CATHETERISATION CARDIAC
     Dosage: 160 ML 1 DOSE INTRACORONARY
     Route: 022
     Dates: start: 20041005, end: 20041005

REACTIONS (2)
  - IIIRD NERVE PARALYSIS [None]
  - STRABISMUS [None]
